FAERS Safety Report 23814459 (Version 1)
Quarter: 2024Q2

REPORT INFORMATION
  Report Type: Spontaneous
  Country: US (occurrence: US)
  Receive Date: 20240503
  Receipt Date: 20240503
  Transmission Date: 20240716
  Serious: No
  Sender: FDA-Public Use
  Company Number: US-TOLMAR, INC.-24US047877

PATIENT
  Sex: Male

DRUGS (3)
  1. KETOCONAZOLE [Suspect]
     Active Substance: KETOCONAZOLE
     Indication: Alopecia
     Dosage: UNK
  2. FINASTERIDE [Concomitant]
     Active Substance: FINASTERIDE
     Indication: Alopecia
  3. MINOXIDIL [Concomitant]
     Active Substance: MINOXIDIL
     Indication: Alopecia

REACTIONS (2)
  - Off label use [Unknown]
  - Therapeutic response unexpected [Unknown]
